FAERS Safety Report 7267117-8 (Version None)
Quarter: 2011Q1

REPORT INFORMATION
  Report Type: 
  Country: None (occurrence: None)
  Receive Date: 20110201
  Receipt Date: 20110128
  Transmission Date: 20110831
  Serious: Yes (Death)
  Sender: FDA-Public Use
  Company Number: PHHY2011CA06621

PATIENT
  Sex: Male

DRUGS (1)
  1. ZOMETA [Suspect]
     Indication: OESOPHAGEAL CARCINOMA
     Dosage: 04 MG EVERY 04 WEEKS
     Route: 042
     Dates: start: 20101103

REACTIONS (1)
  - DEATH [None]
